FAERS Safety Report 7378827-6 (Version None)
Quarter: 2011Q1

REPORT INFORMATION
  Report Type: 
  Country: None (occurrence: None)
  Receive Date: 20110328
  Receipt Date: 20110314
  Transmission Date: 20110831
  Serious: Yes (Other)
  Sender: FDA-Public Use
  Company Number: PHHY2011CA21953

PATIENT
  Sex: Female

DRUGS (1)
  1. ACLASTA [Suspect]
     Indication: OSTEOPOROSIS
     Route: 042
     Dates: start: 20100503

REACTIONS (4)
  - FALL [None]
  - BALANCE DISORDER [None]
  - UPPER LIMB FRACTURE [None]
  - GAIT DISTURBANCE [None]
